FAERS Safety Report 26085857 (Version 1)
Quarter: 2025Q4

REPORT INFORMATION
  Report Type: Spontaneous
  Country: US (occurrence: US)
  Receive Date: 20251125
  Receipt Date: 20251125
  Transmission Date: 20260117
  Serious: No
  Sender: BIOGEN
  Company Number: US-BIOGEN-2025BI01301047

PATIENT
  Age: 56 Year
  Sex: Female

DRUGS (1)
  1. VUMERITY [Suspect]
     Active Substance: DIROXIMEL FUMARATE
     Indication: Multiple sclerosis
     Dosage: DOSAGE TEXT:START DATE ALSO REPORTED AS 07-FEB-2025
     Dates: start: 20250131

REACTIONS (6)
  - Mobility decreased [Not Recovered/Not Resolved]
  - Frequent bowel movements [Recovered/Resolved]
  - Multiple sclerosis relapse [Recovered/Resolved]
  - Abdominal discomfort [Unknown]
  - Migraine [Unknown]
  - Visual impairment [Unknown]

NARRATIVE: CASE EVENT DATE: 20250101
